FAERS Safety Report 10164155 (Version 1)
Quarter: 2014Q2

REPORT INFORMATION
  Report Type: Spontaneous
  Country: US (occurrence: US)
  Receive Date: 20140510
  Receipt Date: 20140510
  Transmission Date: 20141212
  Serious: No
  Sender: FDA-Public Use
  Company Number: US-BRISTOL-MYERS SQUIBB COMPANY-19956408

PATIENT
  Sex: Female

DRUGS (2)
  1. BYETTA [Suspect]
  2. VICTOZA [Concomitant]

REACTIONS (1)
  - Drug ineffective [Unknown]
